FAERS Safety Report 7265450-7 (Version None)
Quarter: 2011Q1

REPORT INFORMATION
  Report Type: 
  Country: None (occurrence: None)
  Receive Date: 20110131
  Receipt Date: 20110117
  Transmission Date: 20110831
  Serious: Yes (Other)
  Sender: FDA-Public Use
  Company Number: PHHY2011JP04372

PATIENT
  Sex: Female

DRUGS (2)
  1. AFINITOR [Suspect]
     Dosage: 05 MG, QD
     Route: 048
     Dates: start: 20100721, end: 20100803
  2. AFINITOR [Suspect]
     Indication: RENAL CELL CARCINOMA
     Dosage: 10 MG, QD
     Route: 048
     Dates: start: 20100624, end: 20100705

REACTIONS (1)
  - PLATELET COUNT DECREASED [None]
